FAERS Safety Report 10401367 (Version 5)
Quarter: 2015Q2

REPORT INFORMATION
  Report Type: Report from Study
  Country: IT (occurrence: IT)
  Receive Date: 20140822
  Receipt Date: 20150424
  Transmission Date: 20150821
  Serious: Yes (Death)
  Sender: FDA-Public Use
  Company Number: IT-ROCHE-1451498

PATIENT
  Age: 64 Year
  Sex: Male
  Weight: 70 kg

DRUGS (16)
  1. CLORFENAMINA [Concomitant]
     Route: 065
     Dates: start: 20140721, end: 20140721
  2. MAGNESIUM SULFATE. [Concomitant]
     Active Substance: MAGNESIUM SULFATE
     Route: 065
     Dates: start: 20140721, end: 20140721
  3. CIPROXIN [Concomitant]
     Active Substance: CIPROFLOXACIN
     Indication: FEBRILE NEUTROPENIA
     Route: 065
     Dates: start: 20140804
  4. CISPLATIN. [Suspect]
     Active Substance: CISPLATIN
     Indication: GASTRIC CANCER
     Dosage: ON 21/JUL/2014, THE PATIENT RECEIVED 133.6 MG OF CISPLATIN PRIOR TO SAE.
     Route: 042
     Dates: start: 20140721
  5. POTASSIUM CHLORIDE. [Concomitant]
     Active Substance: POTASSIUM CHLORIDE
     Route: 065
     Dates: start: 20140721, end: 20140721
  6. FISIOLOGIC SOLUTION [Concomitant]
     Indication: HYPOTENSION
     Route: 065
     Dates: start: 20140806, end: 20140806
  7. CAPECITABINE. [Suspect]
     Active Substance: CAPECITABINE
     Indication: GASTRIC CANCER
     Dosage: ON 01/AUG/2014, THE PATIENT RECEIVED 2500 MG DAILY DOSE OF CAPECITABINE PRIOR TO SAE.
     Route: 048
     Dates: start: 20140721
  8. TRASTUZUMAB [Suspect]
     Active Substance: TRASTUZUMAB
     Indication: GASTRIC CANCER
     Dosage: LOADING DOSE. ON 21/JUL/2014, THE PATIENT RECEIVED MOST RECENT DOSE OF TRASTUZUMAB PRIOR TO SAE
     Route: 042
     Dates: start: 20140721
  9. RANITIDINE [Concomitant]
     Active Substance: RANITIDINE\RANITIDINE HYDROCHLORIDE
     Indication: PROPHYLAXIS
     Route: 065
     Dates: start: 20140721, end: 20140721
  10. PLASIL [Concomitant]
     Active Substance: METOCLOPRAMIDE HYDROCHLORIDE
     Indication: VOMITING
     Route: 065
     Dates: start: 20140801, end: 20140803
  11. FUROSEMIDE. [Concomitant]
     Active Substance: FUROSEMIDE
     Route: 065
     Dates: start: 20140721, end: 20140721
  12. REIDRATANTE [Concomitant]
     Indication: HYPOTENSION
     Route: 065
     Dates: start: 20140806, end: 20140806
  13. PALONOSETRON [Concomitant]
     Active Substance: PALONOSETRON
     Indication: PROPHYLAXIS OF NAUSEA AND VOMITING
     Route: 065
     Dates: start: 20140721, end: 20140721
  14. METOCLOPRAMIDE. [Concomitant]
     Active Substance: METOCLOPRAMIDE
     Indication: PROPHYLAXIS OF NAUSEA AND VOMITING
     Route: 065
     Dates: start: 20140721, end: 20140721
  15. DESAMETASONE [Concomitant]
     Active Substance: DEXAMETHASONE
     Route: 065
     Dates: start: 20140721, end: 20140721
  16. MYELOSTIM [Concomitant]
     Indication: FEBRILE NEUTROPENIA
     Route: 065
     Dates: start: 20140804

REACTIONS (1)
  - Cardiac arrest [Fatal]

NARRATIVE: CASE EVENT DATE: 20140806
